FAERS Safety Report 4862484-4 (Version None)
Quarter: 2005Q4

REPORT INFORMATION
  Report Type: 
  Country: None (occurrence: None)
  Receive Date: 20051221
  Receipt Date: 20051212
  Transmission Date: 20060501
  Serious: Yes (Disabling)
  Sender: FDA-Public Use
  Company Number: 2005CG02067

PATIENT
  Age: 50 Year
  Sex: Female

DRUGS (2)
  1. ROPIVACAINE [Suspect]
     Indication: POSTOPERATIVE ANALGESIA
     Route: 053
  2. UNSPECIFIED ANAESTHETICS [Concomitant]
     Indication: GENERAL ANAESTHESIA

REACTIONS (1)
  - POLYNEUROPATHY [None]
